FAERS Safety Report 12118114 (Version 1)
Quarter: 2016Q1

REPORT INFORMATION
  Report Type: Spontaneous
  Country: US (occurrence: US)
  Receive Date: 20160226
  Receipt Date: 20160226
  Transmission Date: 20160526
  Serious: No
  Sender: FDA-Public Use
  Company Number: US-ASTRAZENECA-2016SE20086

PATIENT
  Sex: Female

DRUGS (1)
  1. NEXIUM 24HR [Suspect]
     Active Substance: ESOMEPRAZOLE MAGNESIUM
     Dosage: 2 CAPSULES DAILY (FOR A WEEK)
     Route: 048

REACTIONS (8)
  - Flatulence [Unknown]
  - Dry mouth [Unknown]
  - Condition aggravated [Unknown]
  - Intentional product misuse [Unknown]
  - Off label use [Unknown]
  - Nausea [Unknown]
  - Constipation [Unknown]
  - Abdominal pain upper [Unknown]
